FAERS Safety Report 9324761 (Version 3)
Quarter: 2013Q3

REPORT INFORMATION
  Report Type: Spontaneous
  Country: US (occurrence: None)
  Receive Date: 20130529
  Receipt Date: 20130904
  Transmission Date: 20140515
  Serious: Yes (Other)
  Sender: FDA-Public Use
  Company Number: 2013UCU075000164

PATIENT
  Age: 38 Year
  Sex: Male
  Weight: 94 kg

DRUGS (7)
  1. METHOTREXATE [Suspect]
     Indication: CROHN^S DISEASE
     Route: 058
     Dates: start: 20100105, end: 201006
  2. NO STUDY MEDICATION [Suspect]
  3. VITAMIN B12 NOS [Concomitant]
  4. FOLIC ACID [Concomitant]
  5. REMICADE [Concomitant]
  6. PREDNISONE [Concomitant]
  7. INFLIXIMAB [Concomitant]

REACTIONS (3)
  - Abdominal pain [None]
  - Vomiting [None]
  - Hypersensitivity [None]
